FAERS Safety Report 11204770 (Version 1)
Quarter: 2015Q2

REPORT INFORMATION
  Report Type: Spontaneous
  Country: US (occurrence: None)
  Receive Date: 20150617
  Receipt Date: 20150617
  Transmission Date: 20150821
  Serious: Yes (Other)
  Sender: FDA-Public Use
  Company Number: US-ZYDUS-008471

PATIENT
  Age: 62 Year
  Sex: Male

DRUGS (1)
  1. MORPHINE (MORPHINE) [Suspect]
     Active Substance: MORPHINE
     Indication: ABDOMINAL PAIN
     Route: 048

REACTIONS (1)
  - Neurotoxicity [None]
